FAERS Safety Report 9413566 (Version 2)
Quarter: 2013Q3

REPORT INFORMATION
  Report Type: Spontaneous
  Country: US (occurrence: US)
  Receive Date: 20130627
  Receipt Date: 20130813
  Transmission Date: 20140515
  Serious: Yes (Hospitalization)
  Sender: FDA-Public Use
  Company Number: 2012P1009529

PATIENT
  Age: 49 Year
  Sex: Female

DRUGS (2)
  1. INFUMORPH [Suspect]
     Indication: POST LAMINECTOMY SYNDROME
     Route: 037
     Dates: start: 20120221
  2. INFUMORPH [Suspect]
     Indication: SPINAL PAIN
     Route: 037
     Dates: start: 20120221

REACTIONS (4)
  - Pain in extremity [None]
  - Palpitations [None]
  - Pain [None]
  - Unevaluable event [None]
